FAERS Safety Report 9671449 (Version 1)
Quarter: 2013Q4

REPORT INFORMATION
  Report Type: Report from Study
  Country: US (occurrence: US)
  Receive Date: 20131106
  Receipt Date: 20131106
  Transmission Date: 20140711
  Serious: Yes (Hospitalization)
  Sender: FDA-Public Use
  Company Number: PHEH2013US023058

PATIENT
  Age: 43 Year
  Sex: Male

DRUGS (1)
  1. TOBI PODHALER [Suspect]
     Indication: RESPIRATORY DISORDER
     Dosage: 4 X 28MG, BID

REACTIONS (3)
  - Intestinal obstruction [Unknown]
  - Pulmonary function test decreased [Unknown]
  - Oropharyngeal pain [Unknown]
